FAERS Safety Report 4410456-6 (Version None)
Quarter: 2004Q3

REPORT INFORMATION
  Report Type: 
  Country: None (occurrence: None)
  Receive Date: 20040729
  Receipt Date: 20040722
  Transmission Date: 20050211
  Serious: Yes (Hospitalization)
  Sender: FDA-Public Use
  Company Number: PHBS2004CL09717

PATIENT
  Age: 34 Year
  Sex: Female

DRUGS (3)
  1. LAMISIL [Suspect]
     Indication: NAIL TINEA
     Route: 048
  2. ANACIN [Concomitant]
  3. HERBAL PREPARATION [Suspect]

REACTIONS (3)
  - GENERAL PHYSICAL HEALTH DETERIORATION [None]
  - RASH [None]
  - SKIN DISCOLOURATION [None]
